FAERS Safety Report 8559718-1 (Version None)
Quarter: 2012Q3

REPORT INFORMATION
  Report Type: 
  Country: None (occurrence: None)
  Receive Date: 20120802
  Receipt Date: 20120730
  Transmission Date: 20120928
  Serious: Yes (Other)
  Sender: FDA-Public Use
  Company Number: CH-PFIZER INC-2012185325

PATIENT
  Age: 84 Year
  Sex: Female

DRUGS (1)
  1. LYRICA [Suspect]
     Indication: FORMICATION
     Dosage: 50 MG, 2X/DAY

REACTIONS (5)
  - LIP DISORDER [None]
  - ERYTHEMA [None]
  - RASH [None]
  - PRURITUS [None]
  - SWOLLEN TONGUE [None]
